FAERS Safety Report 9341300 (Version 1)
Quarter: 2013Q2

REPORT INFORMATION
  Report Type: Spontaneous
  Country: US (occurrence: None)
  Receive Date: 20130610
  Receipt Date: 20130610
  Transmission Date: 20140414
  Serious: Yes (Other)
  Sender: FDA-Public Use
  Company Number: None

PATIENT
  Age: 6 Year
  Sex: Male
  Weight: 23.59 kg

DRUGS (1)
  1. ACETAMINOPHEN + CODEINE PHOSPHATE [Suspect]
     Indication: PROCEDURAL PAIN
     Route: 048
     Dates: start: 20130604, end: 20130606

REACTIONS (6)
  - Pyrexia [None]
  - Nausea [None]
  - Vomiting [None]
  - Hypersomnia [None]
  - Dyspnoea [None]
  - White blood cell count increased [None]
